FAERS Safety Report 6962370-X (Version None)
Quarter: 2010Q3

REPORT INFORMATION
  Report Type: 
  Country: None (occurrence: None)
  Receive Date: 20100823
  Receipt Date: 20100616
  Transmission Date: 20110219
  Serious: No
  Sender: FDA-Public Use
  Company Number: 014077

PATIENT
  Sex: Female
  Weight: 95.2 kg

DRUGS (9)
  1. CIMZIA [Suspect]
     Indication: CROHN'S DISEASE
     Dosage: (400 MG 1X/MONTH SUBCUTANEOUS)
     Route: 058
     Dates: start: 20100329
  2. ASACOL [Concomitant]
  3. DICYCLOMINE [Concomitant]
  4. NEXIUM [Concomitant]
  5. WELLBUTRIN [Concomitant]
  6. ELAVIL [Concomitant]
  7. ESTROGENS [Concomitant]
  8. VITAMIN B12 [Concomitant]
  9. DIAZEPAM [Concomitant]

REACTIONS (2)
  - OEDEMA PERIPHERAL [None]
  - URINARY TRACT INFECTION [None]
